FAERS Safety Report 4552904-7 (Version None)
Quarter: 2005Q1

REPORT INFORMATION
  Report Type: 
  Country: None (occurrence: None)
  Receive Date: 20050114
  Receipt Date: 20050105
  Transmission Date: 20050727
  Serious: Yes (Hospitalization)
  Sender: FDA-Public Use
  Company Number: JP-JNJFOC-20050100929

PATIENT
  Age: 83 Year
  Sex: Female
  Weight: 56 kg

DRUGS (10)
  1. OFLOXACIN [Suspect]
     Indication: INFECTION
     Route: 049
     Dates: start: 20030507
  2. LOVENOX [Suspect]
     Route: 058
     Dates: start: 20030502, end: 20030507
  3. LOVENOX [Suspect]
     Route: 058
     Dates: start: 20030502, end: 20030507
  4. PLAVIX [Suspect]
     Indication: DRUG USE FOR UNKNOWN INDICATION
     Route: 049
     Dates: end: 20030507
  5. ROCEPHIN [Concomitant]
     Route: 042
  6. ARICEPT [Concomitant]
  7. DEROXAT [Concomitant]
  8. DOLIPRANE [Concomitant]
     Route: 049
  9. CORDARONE [Concomitant]
  10. ATARAX [Concomitant]
     Dates: start: 20030501, end: 20030506

REACTIONS (7)
  - ANAEMIA [None]
  - ESCHERICHIA SEPSIS [None]
  - HAEMATOMA [None]
  - LUNG DISORDER [None]
  - MUSCLE HAEMORRHAGE [None]
  - PLEURAL DISORDER [None]
  - PYELONEPHRITIS [None]
